FAERS Safety Report 19933539 (Version 3)
Quarter: 2021Q4

REPORT INFORMATION
  Report Type: Spontaneous
  Country: AT (occurrence: AT)
  Receive Date: 20211008
  Receipt Date: 20211122
  Transmission Date: 20220303
  Serious: Yes (Hospitalization)
  Sender: FDA-Public Use
  Company Number: AT-CELGENE-AUT-20210601634

PATIENT
  Age: 74 Year
  Sex: Female
  Weight: 67 kg

DRUGS (11)
  1. AZACITIDINE [Suspect]
     Active Substance: AZACITIDINE
     Indication: Myelodysplastic syndrome
     Dosage: 1575 MILLIGRAM/SQ. METER, 28D CYCLE (75 MILLIGRAM/SQ. METER)
     Route: 058
     Dates: start: 20210325, end: 20210502
  2. AZACITIDINE [Suspect]
     Active Substance: AZACITIDINE
     Dosage: 525 MILLIGRAM/SQ. METER (75 MILLIGRAM/SQ. METER )
     Route: 058
     Dates: start: 20210325, end: 20210502
  3. VENETOCLAX [Suspect]
     Active Substance: VENETOCLAX
     Indication: Myelodysplastic syndrome
     Dosage: 5600 MILLIGRAM, 28D CYCLE  (400 MILLIGRAM)
     Route: 048
     Dates: start: 20210325, end: 20210509
  4. TRAZODONE HYDROCHLORIDE [Concomitant]
     Active Substance: TRAZODONE HYDROCHLORIDE
     Indication: Antidepressant therapy
     Dosage: UNK UNK, QD, (1/3 FROM 150 1 IN 1 DAY)
     Route: 048
     Dates: start: 20131013
  5. ONDANSETRON HYDROCHLORIDE [Concomitant]
     Active Substance: ONDANSETRON HYDROCHLORIDE
     Indication: Nausea
     Dosage: 8 MILLIGRAM
     Route: 048
     Dates: start: 20210325
  6. OLEOVIT                            /01371001/ [Concomitant]
     Indication: Vitamin D deficiency
     Dosage: UNK, (15 DROP,2 IN 1 WEEK)
     Route: 048
     Dates: start: 2014
  7. ACETAMINOPHEN [Concomitant]
     Active Substance: ACETAMINOPHEN
     Indication: Pain
     Dosage: 500 MILLIGRAM
     Route: 048
     Dates: start: 20210325
  8. POLYETHYLENE GLYCOL 3350\POTASSIUM CHLORIDE\SODIUM BICARBONATE\SODIUM [Concomitant]
     Active Substance: POLYETHYLENE GLYCOL 3350\POTASSIUM CHLORIDE\SODIUM BICARBONATE\SODIUM CHLORIDE
     Indication: Constipation
     Dosage: UNK, (1-3 BAGS)
     Route: 048
     Dates: start: 20210325
  9. GLANDOMED [Concomitant]
     Indication: Dental disorder prophylaxis
     Dosage: UNK, (1-4 CUPS)
     Route: 048
     Dates: start: 20210415
  10. ASCORBIC ACID\CALCIUM PHOSPHATE\CHOLECALCIFEROL\CITRIC ACID MONOHYDRAT [Concomitant]
     Active Substance: ASCORBIC ACID\CALCIUM PHOSPHATE\CHOLECALCIFEROL\CITRIC ACID MONOHYDRATE
     Indication: Osteoporosis prophylaxis
     Dosage: 500 MILLIGRAM, QD, (500 MILLIGRAM)
     Route: 048
     Dates: start: 20140327
  11. ONDANSETRON HYDROCHLORIDE [Concomitant]
     Active Substance: ONDANSETRON HYDROCHLORIDE
     Indication: Nausea
     Dosage: 8 MILLIGRAM
     Route: 048
     Dates: start: 20210325

REACTIONS (5)
  - C-reactive protein [Not Recovered/Not Resolved]
  - Leukopenia [Not Recovered/Not Resolved]
  - Thrombocytopenia [Recovered/Resolved]
  - General physical health deterioration [Recovered/Resolved]
  - Neutropenia [Recovered/Resolved]

NARRATIVE: CASE EVENT DATE: 20210528
